FAERS Safety Report 18079387 (Version 1)
Quarter: 2020Q3

REPORT INFORMATION
  Report Type: Spontaneous
  Country: US (occurrence: US)
  Receive Date: 20200727
  Receipt Date: 20200727
  Transmission Date: 20201103
  Serious: Yes (Other)
  Sender: FDA-Public Use
  Company Number: None

PATIENT
  Age: 70 Year
  Sex: Male
  Weight: 141.75 kg

DRUGS (2)
  1. ICATIBANT [Suspect]
     Active Substance: ICATIBANT ACETATE
     Indication: COMPLEMENT DEFICIENCY DISEASE
     Dosage: ?          OTHER FREQUENCY:PRN HAE ATTACK;?
     Route: 058
  2. HAEGARDA 8000 UNITS SQ 2 TIMES A WEEK [Concomitant]
     Dates: start: 20180818

REACTIONS (4)
  - Headache [None]
  - Arthralgia [None]
  - Lip disorder [None]
  - Abdominal discomfort [None]

NARRATIVE: CASE EVENT DATE: 20200711
